FAERS Safety Report 7408249-0 (Version None)
Quarter: 2011Q2

REPORT INFORMATION
  Report Type: 
  Country: None (occurrence: None)
  Receive Date: 20110412
  Receipt Date: 20110216
  Transmission Date: 20111010
  Serious: No
  Sender: FDA-Public Use
  Company Number: A0914172A

PATIENT
  Age: 51 Year
  Sex: Male

DRUGS (1)
  1. JALYN [Suspect]
     Indication: BENIGN PROSTATIC HYPERPLASIA
     Dosage: .5MG PER DAY
     Route: 048

REACTIONS (1)
  - EPISTAXIS [None]
